FAERS Safety Report 6309077-X (Version None)
Quarter: 2009Q3

REPORT INFORMATION
  Report Type: 
  Country: None (occurrence: None)
  Receive Date: 20090814
  Receipt Date: 20070605
  Transmission Date: 20100115
  Serious: Yes (Hospitalization, Other)
  Sender: FDA-Public Use
  Company Number: US-ASTRAZENECA-2006UW27640

PATIENT
  Age: 18442 Day
  Sex: Female
  Weight: 62.6 kg

DRUGS (12)
  1. SEROQUEL [Suspect]
     Indication: INSOMNIA RELATED TO ANOTHER MENTAL CONDITION
     Dosage: 50-300 MG
     Route: 048
     Dates: start: 20000925, end: 20070929
  2. SEROQUEL [Suspect]
     Indication: PSYCHOTIC DISORDER
     Dosage: 50-300 MG
     Route: 048
     Dates: start: 20000925, end: 20070929
  3. SEROQUEL [Suspect]
     Route: 048
  4. SEROQUEL [Suspect]
     Route: 048
  5. EFFEXOR XR [Concomitant]
  6. RESTORIL [Concomitant]
     Dates: start: 20000413
  7. NEURONTIN [Concomitant]
     Indication: DEPRESSION
     Dosage: 300-2000 MG
     Dates: start: 20000413
  8. PAXIL [Concomitant]
     Dosage: 20-30 MG
     Route: 048
     Dates: start: 20000711
  9. ATIVAN [Concomitant]
     Indication: ANXIETY
     Dosage: 1-2 MG
     Route: 048
     Dates: start: 20000711
  10. WELLBUTRIN SR [Concomitant]
     Indication: DEPRESSION
     Dosage: 150-400 MG
     Route: 048
     Dates: start: 20011115
  11. LIPITOR [Concomitant]
     Dates: start: 20010423
  12. PEPCID [Concomitant]
     Route: 048
     Dates: start: 20010119

REACTIONS (14)
  - DIABETES MELLITUS INADEQUATE CONTROL [None]
  - DIABETIC COMA [None]
  - DIABETIC EYE DISEASE [None]
  - DIABETIC KETOACIDOSIS [None]
  - DIABETIC NEPHROPATHY [None]
  - DIABETIC NEUROPATHY [None]
  - DIABETIC RETINOPATHY [None]
  - HYPOGLYCAEMIA [None]
  - HYPOGLYCAEMIC COMA [None]
  - IMPAIRED GASTRIC EMPTYING [None]
  - METABOLIC ACIDOSIS [None]
  - NEUROPATHY PERIPHERAL [None]
  - SOMNOLENCE [None]
  - TYPE 1 DIABETES MELLITUS [None]
